FAERS Safety Report 24181114 (Version 1)
Quarter: 2024Q3

REPORT INFORMATION
  Report Type: Spontaneous
  Country: US (occurrence: US)
  Receive Date: 20240806
  Receipt Date: 20240806
  Transmission Date: 20241017
  Serious: Yes (Other)
  Sender: BRISTOL MYERS SQUIBB
  Company Number: US-BRISTOL-MYERS SQUIBB COMPANY-2024-121580

PATIENT
  Age: 67 Year
  Sex: Male

DRUGS (13)
  1. POMALYST [Suspect]
     Active Substance: POMALIDOMIDE
     Indication: Plasma cell myeloma
     Route: 048
     Dates: start: 20240613
  2. COLACE [Concomitant]
     Active Substance: DOCUSATE SODIUM
  3. DEXAMETHASONE [Concomitant]
     Active Substance: DEXAMETHASONE
  4. DEXAMETHASONE [Concomitant]
     Active Substance: DEXAMETHASONE
  5. NALOXONE [Concomitant]
     Active Substance: NALOXONE
     Dosage: DOSE- 4MG/0.1ML, 2 PACK
  6. SERTRALINE [Concomitant]
     Active Substance: SERTRALINE HYDROCHLORIDE
  7. TAMSULOSIN [Concomitant]
     Active Substance: TAMSULOSIN
  8. KYPROLIS [Concomitant]
     Active Substance: CARFILZOMIB
     Dosage: 1 VIAL
  9. DILAUDID [Concomitant]
     Active Substance: HYDROMORPHONE HYDROCHLORIDE
  10. IBUPROFEN [Concomitant]
     Active Substance: IBUPROFEN
  11. ACYCLOVIR [Concomitant]
     Active Substance: ACYCLOVIR
  12. ASPIRIN [Concomitant]
     Active Substance: ASPIRIN
  13. FOLIC ACID [Concomitant]
     Active Substance: FOLIC ACID

REACTIONS (1)
  - Adverse event [Unknown]

NARRATIVE: CASE EVENT DATE: 20240701
